FAERS Safety Report 24125315 (Version 1)
Quarter: 2024Q3

REPORT INFORMATION
  Report Type: Spontaneous
  Country: TR (occurrence: TR)
  Receive Date: 20240723
  Receipt Date: 20240723
  Transmission Date: 20241016
  Serious: Yes (Hospitalization, Disabling)
  Sender: MACLEODS
  Company Number: TR-MLMSERVICE-20240705-PI124892-00246-1

PATIENT

DRUGS (9)
  1. OLANZAPINE [Suspect]
     Active Substance: OLANZAPINE
     Indication: Psychotic symptom
     Dosage: INCREASING THE DOSE
     Route: 065
     Dates: start: 2020, end: 2020
  2. OLANZAPINE [Suspect]
     Active Substance: OLANZAPINE
     Indication: Depressive symptom
     Route: 065
     Dates: start: 2020, end: 2020
  3. LITHIUM [Suspect]
     Active Substance: LITHIUM
     Indication: Bipolar I disorder
     Dosage: CONTINUED TREATMENT REGULARLY, 29 YEARS
     Route: 065
     Dates: start: 1990, end: 2019
  4. LITHIUM [Suspect]
     Active Substance: LITHIUM
     Indication: Bipolar I disorder
     Route: 065
     Dates: start: 2019
  5. LITHIUM [Suspect]
     Active Substance: LITHIUM
     Dosage: DOSE WAS REDUCED
     Route: 065
  6. LITHIUM [Suspect]
     Active Substance: LITHIUM
     Dosage: TREATMENT WAS ADJUSTED
     Route: 065
     Dates: start: 2020, end: 2020
  7. LITHIUM [Suspect]
     Active Substance: LITHIUM
     Dosage: STARTED USING LITHIUM IRREGULARLY IN EARLY 2019
     Route: 065
     Dates: start: 2019, end: 2019
  8. SERTRALINE [Concomitant]
     Active Substance: SERTRALINE HYDROCHLORIDE
     Route: 065
     Dates: start: 2020, end: 2020
  9. SERTRALINE [Concomitant]
     Active Substance: SERTRALINE HYDROCHLORIDE

REACTIONS (3)
  - Catatonia [Recovered/Resolved]
  - Neurotoxicity [Recovered/Resolved]
  - Extrapyramidal disorder [Recovered/Resolved]

NARRATIVE: CASE EVENT DATE: 20200101
